FAERS Safety Report 8332009-X (Version None)
Quarter: 2012Q2

REPORT INFORMATION
  Report Type: 
  Country: None (occurrence: None)
  Receive Date: 20120502
  Receipt Date: 20120426
  Transmission Date: 20120825
  Serious: No
  Sender: FDA-Public Use
  Company Number: US-AMGEN-USASP2011010380

PATIENT
  Age: 42 Year
  Sex: Male

DRUGS (2)
  1. HUMIRA [Concomitant]
  2. ENBREL [Suspect]
     Indication: PSORIATIC ARTHROPATHY
     Dosage: 50 MG, QWK
     Dates: start: 20090401

REACTIONS (5)
  - PYREXIA [None]
  - SINUS CONGESTION [None]
  - RESPIRATORY DISORDER [None]
  - CHILLS [None]
  - RESPIRATORY TRACT CONGESTION [None]
